FAERS Safety Report 6179488-4 (Version None)
Quarter: 2009Q2

REPORT INFORMATION
  Report Type: 
  Country: None (occurrence: None)
  Receive Date: 20090505
  Receipt Date: 20090429
  Transmission Date: 20091009
  Serious: Yes (Death)
  Sender: FDA-Public Use
  Company Number: US-ROCHE-628535

PATIENT
  Sex: Male
  Weight: 62.6 kg

DRUGS (1)
  1. CAPECITABINE [Suspect]
     Indication: GASTROINTESTINAL CARCINOMA
     Dosage: TAKEN ^2 A.M. AND 2 P.M.
     Route: 048
     Dates: start: 20090302

REACTIONS (1)
  - OESOPHAGEAL CANCER METASTATIC [None]
